FAERS Safety Report 18349446 (Version 4)
Quarter: 2020Q4

REPORT INFORMATION
  Report Type: Report from Study
  Country: CA (occurrence: CA)
  Receive Date: 20201006
  Receipt Date: 20201110
  Transmission Date: 20210114
  Serious: Yes (Death, Hospitalization, Other)
  Sender: FDA-Public Use
  Company Number: CA-HLS-202001455

PATIENT
  Age: 63 Year
  Sex: Male

DRUGS (6)
  1. RISPERDAL [Concomitant]
     Active Substance: RISPERIDONE
     Dosage: 1 MG PO QAM X 28 DAYS?4 MG PO QQHS X 28 DAYS
     Route: 048
     Dates: start: 20200210
  2. INDERAL [Concomitant]
     Active Substance: PROPRANOLOL HYDROCHLORIDE
     Dosage: 10 MG PO BID X 28 DAYS
     Route: 048
     Dates: start: 20200310
  3. COLACE [Concomitant]
     Active Substance: DOCUSATE SODIUM
     Dosage: 100 MG PO, QHS X 28 DAYS
     Route: 048
     Dates: start: 20200310
  4. VALIUM [Concomitant]
     Active Substance: DIAZEPAM
     Dosage: 05 MG PO QAM X 28 DAYS?10 MG PO QPM X 28 DAYS?
     Route: 048
     Dates: start: 20200310
  5. CLOZARIL [Suspect]
     Active Substance: CLOZAPINE
     Indication: SCHIZOPHRENIA
     Dosage: 250 MG QHS SINCE } 10 YEARS
     Route: 048
     Dates: start: 20040616
  6. ATROPINE. [Concomitant]
     Active Substance: ATROPINE
     Dosage: 10 MG PO BID X 28 DAYS
     Route: 065
     Dates: start: 20200310

REACTIONS (5)
  - Malaise [Unknown]
  - Asthenia [Not Recovered/Not Resolved]
  - Death [Fatal]
  - Weight decreased [Not Recovered/Not Resolved]
  - Adult failure to thrive [Not Recovered/Not Resolved]

NARRATIVE: CASE EVENT DATE: 20200910
